FAERS Safety Report 9543201 (Version 1)
Quarter: 2013Q3

REPORT INFORMATION
  Report Type: Spontaneous
  Country: US (occurrence: US)
  Receive Date: 20130923
  Receipt Date: 20130923
  Transmission Date: 20140515
  Serious: Yes (Other)
  Sender: FDA-Public Use
  Company Number: US-NAPPMUNDI-USA-2012-0094475

PATIENT
  Sex: Male

DRUGS (3)
  1. HYDROMORPHONE HCL (SIMILAR TO 19-892) [Suspect]
     Indication: PAIN
     Dosage: UNKNOWN
     Route: 048
  2. OXYCONTIN (NDA 22-272) [Suspect]
     Indication: PAIN
     Dosage: UNKNOWN
     Route: 048
  3. OPIOIDS [Suspect]
     Indication: PAIN
     Dosage: UNKNOWN

REACTIONS (1)
  - Drug dependence [Unknown]
